FAERS Safety Report 20020740 (Version 1)
Quarter: 2021Q4

REPORT INFORMATION
  Report Type: Spontaneous
  Country: None (occurrence: US)
  Receive Date: 20211101
  Receipt Date: 20211101
  Transmission Date: 20220303
  Serious: Yes (Hospitalization, Other)
  Sender: FDA-Public Use
  Company Number: US-Acella Pharmaceuticals, LLC-2121295

PATIENT
  Age: 37 Year
  Sex: Female

DRUGS (1)
  1. BROMPHENIRAMINE MAL, PSEUDOEPHEDRINE HCL, AND DEXTROMETHORPHAN HBR [Suspect]
     Active Substance: BROMPHENIRAMINE MALEATE\DEXTROMETHORPHAN HYDROBROMIDE\PSEUDOEPHEDRINE HYDROCHLORIDE
     Indication: Product used for unknown indication
     Route: 065

REACTIONS (18)
  - Mania [Unknown]
  - Psychotic disorder [Recovering/Resolving]
  - Substance-induced psychotic disorder [Unknown]
  - Intentional self-injury [Unknown]
  - Anxiety [Unknown]
  - Stress [Unknown]
  - Hallucination [Unknown]
  - Dissociation [Unknown]
  - Delusion [Unknown]
  - Eye excision [Unknown]
  - Toxicity to various agents [Unknown]
  - Intentional product misuse [Unknown]
  - Constricted affect [Unknown]
  - Shock [Unknown]
  - Depression [Unknown]
  - Scleral disorder [Unknown]
  - Open globe injury [Unknown]
  - Anterior chamber collapse [Unknown]
